FAERS Safety Report 9987688 (Version 1)
Quarter: 2014Q1

REPORT INFORMATION
  Report Type: Spontaneous
  Country: US (occurrence: US)
  Receive Date: 20140307
  Receipt Date: 20140307
  Transmission Date: 20141002
  Serious: Yes (Other)
  Sender: FDA-Public Use
  Company Number: US-WATSON-2014-03836

PATIENT
  Age: 69 Year
  Sex: Male
  Weight: 71 kg

DRUGS (1)
  1. BUPROPION HYDROCHLORIDE EXTENDED RELEASE SR [Suspect]
     Indication: DEPRESSION
     Dosage: 150 MG, DAILY
     Route: 048
     Dates: start: 20140209, end: 20140211

REACTIONS (2)
  - Visual impairment [Recovered/Resolved]
  - Vision blurred [Recovered/Resolved]
